FAERS Safety Report 17660915 (Version 1)
Quarter: 2020Q2

REPORT INFORMATION
  Report Type: Spontaneous
  Country: US (occurrence: US)
  Receive Date: 20200411
  Receipt Date: 20200411
  Transmission Date: 20200713
  Serious: Yes (Life-Threatening, Hospitalization, Disabling)
  Sender: FDA-Public Use
  Company Number: None

PATIENT
  Age: 25 Year
  Sex: Male
  Weight: 65.25 kg

DRUGS (6)
  1. GEODON [Suspect]
     Active Substance: ZIPRASIDONE HYDROCHLORIDE\ZIPRASIDONE MESYLATE
  2. INVEGA SUSTENNA [Suspect]
     Active Substance: PALIPERIDONE PALMITATE
     Indication: PRODUCT USED FOR UNKNOWN INDICATION
  3. RISPERIDONE. [Suspect]
     Active Substance: RISPERIDONE
  4. SEROQUEL [Suspect]
     Active Substance: QUETIAPINE FUMARATE
  5. LATUDA [Suspect]
     Active Substance: LURASIDONE HYDROCHLORIDE
  6. VRAYLAR [Suspect]
     Active Substance: CARIPRAZINE

REACTIONS (1)
  - Adverse drug reaction [None]

NARRATIVE: CASE EVENT DATE: 20140901
